FAERS Safety Report 22777386 (Version 3)
Quarter: 2025Q4

REPORT INFORMATION
  Report Type: Spontaneous
  Country: US (occurrence: US)
  Receive Date: 20230802
  Receipt Date: 20251215
  Transmission Date: 20260117
  Serious: Yes (Other)
  Sender: PFIZER
  Company Number: US-PFIZER INC-PV202300131957

PATIENT
  Age: 6 Month
  Sex: Male
  Weight: 8.44 kg

DRUGS (2)
  1. BENEFIX [Suspect]
     Active Substance: COAGULATION FACTOR IX RECOMBINANT HUMAN\ISOPROPYL ALCOHOL
     Indication: Factor IX deficiency
     Dosage: INJECT 380 UNITS IV DAILYAS NEEDED FOR MINOR BLEEDS AND 760 UNITSIVDAILY AS NEEDED FOR MAJOR BLEEDS
     Route: 042
  2. BENEFIX [Suspect]
     Active Substance: COAGULATION FACTOR IX RECOMBINANT HUMAN\ISOPROPYL ALCOHOL
     Indication: Haemorrhage

REACTIONS (1)
  - Pertussis [Recovering/Resolving]

NARRATIVE: CASE EVENT DATE: 20230101
